FAERS Safety Report 13443022 (Version 1)
Quarter: 2017Q2

REPORT INFORMATION
  Report Type: Spontaneous
  Country: US (occurrence: US)
  Receive Date: 20170414
  Receipt Date: 20170414
  Transmission Date: 20170830
  Serious: No
  Sender: FDA-Public Use
  Company Number: US-TEVA-751444ACC

PATIENT
  Age: 21 Year
  Sex: Female
  Weight: 52.21 kg

DRUGS (2)
  1. SYNTHROID [Concomitant]
     Active Substance: LEVOTHYROXINE SODIUM
     Indication: HYPOTHYROIDISM
  2. PLAN B ONE-STEP [Suspect]
     Active Substance: LEVONORGESTREL
     Indication: POST COITAL CONTRACEPTION
     Dates: start: 20170311, end: 20170311

REACTIONS (6)
  - Menstruation delayed [Not Recovered/Not Resolved]
  - Back pain [Not Recovered/Not Resolved]
  - Anger [Not Recovered/Not Resolved]
  - Breast tenderness [Not Recovered/Not Resolved]
  - Vaginal haemorrhage [Recovered/Resolved]
  - Headache [Not Recovered/Not Resolved]

NARRATIVE: CASE EVENT DATE: 20170311
